FAERS Safety Report 8987811 (Version 3)
Quarter: 2013Q2

REPORT INFORMATION
  Report Type: Spontaneous
  Country: US (occurrence: US)
  Receive Date: 20121227
  Receipt Date: 20130513
  Transmission Date: 20140414
  Serious: No
  Sender: FDA-Public Use
  Company Number: US-PFIZER INC-2012325205

PATIENT
  Age: 63 Year
  Sex: Male
  Weight: 104 kg

DRUGS (5)
  1. SUTENT [Suspect]
     Indication: RENAL CANCER
     Dosage: 50 MG, 1X/DAY
     Dates: start: 2012
  2. SUTENT [Suspect]
     Indication: PANCREATIC CARCINOMA
  3. SUTENT [Suspect]
     Indication: HEPATIC CANCER
  4. NOVOLOG [Concomitant]
     Indication: DIABETES MELLITUS
     Dosage: 30 IU, 3X/DAY
  5. NOVOLOG MIX 70/30 [Concomitant]
     Indication: DIABETES MELLITUS
     Dosage: UNK, 1X/DAY

REACTIONS (3)
  - Muscle spasms [Not Recovered/Not Resolved]
  - Skin discolouration [Unknown]
  - Pain in extremity [Not Recovered/Not Resolved]
